FAERS Safety Report 9608404 (Version 2)
Quarter: 2013Q4

REPORT INFORMATION
  Report Type: Spontaneous
  Country: US (occurrence: US)
  Receive Date: 20131009
  Receipt Date: 20131017
  Transmission Date: 20140711
  Serious: No
  Sender: FDA-Public Use
  Company Number: US-009507513-1310USA003809

PATIENT
  Sex: Male
  Weight: 78.91 kg

DRUGS (5)
  1. CORICIDIN HBP COUGH AND COLD [Suspect]
     Indication: RHINORRHOEA
     Dosage: UNK, UNKNOWN
     Dates: start: 20130920, end: 20130922
  2. ABILIFY [Concomitant]
     Indication: SCHIZOPHRENIA
     Dosage: UNK, UNKNOWN
  3. IBUPROFEN [Concomitant]
     Indication: ADVERSE REACTION
     Dosage: UNK, UNKNOWN
  4. MELATONIN [Concomitant]
     Indication: SLEEP DISORDER THERAPY
     Dosage: UNK, UNKNOWN
  5. GEODON [Concomitant]
     Indication: THINKING ABNORMAL
     Dosage: UNK, UNKNOWN

REACTIONS (1)
  - Feeling hot [Unknown]
